FAERS Safety Report 7445527-3 (Version None)
Quarter: 2011Q2

REPORT INFORMATION
  Report Type: 
  Country: None (occurrence: None)
  Receive Date: 20110429
  Receipt Date: 20110426
  Transmission Date: 20111010
  Serious: Yes (Hospitalization, Other)
  Sender: FDA-Public Use
  Company Number: FR-ABBOTT-11P-056-0702645-00

PATIENT
  Sex: Female
  Weight: 50 kg

DRUGS (7)
  1. CORTANCYL [Concomitant]
  2. ARAVA [Concomitant]
     Indication: RHEUMATOID ARTHRITIS
     Dates: start: 20040101, end: 20100101
  3. CORTICOTHERAPY (NOS) [Concomitant]
     Indication: RHEUMATOID ARTHRITIS
     Dates: start: 20040101, end: 20100101
  4. CORTANCYL [Concomitant]
     Indication: RHEUMATOID ARTHRITIS
  5. HUMIRA [Suspect]
     Indication: RHEUMATOID ARTHRITIS
     Dates: start: 20040101, end: 20100101
  6. METOJECT [Concomitant]
     Indication: RHEUMATOID ARTHRITIS
  7. FOSAMAX [Concomitant]
     Indication: MENOPAUSE
     Dates: end: 20091001

REACTIONS (4)
  - URINARY TRACT INFECTION [None]
  - ARTHRITIS INFECTIVE [None]
  - COLON CANCER [None]
  - ANASTOMOTIC FISTULA [None]
